FAERS Safety Report 20764249 (Version 2)
Quarter: 2022Q2

REPORT INFORMATION
  Report Type: Spontaneous
  Country: US (occurrence: US)
  Receive Date: 20220428
  Receipt Date: 20220511
  Transmission Date: 20220721
  Serious: Yes (Other)
  Sender: FDA-Public Use
  Company Number: US-009507513-2203USA005244

PATIENT
  Sex: Male
  Weight: 95.692 kg

DRUGS (3)
  1. JANUMET [Suspect]
     Active Substance: METFORMIN HYDROCHLORIDE\SITAGLIPTIN PHOSPHATE
     Indication: Diabetes mellitus
     Dosage: ONE TABLET, TWICE DAILY
     Route: 048
     Dates: start: 2018
  2. NOVOLOG [Suspect]
     Active Substance: INSULIN ASPART
     Dosage: UNK
  3. TARCEVA [Concomitant]
     Active Substance: ERLOTINIB HYDROCHLORIDE
     Dosage: UNK

REACTIONS (5)
  - Diabetes mellitus inadequate control [Unknown]
  - Bipolar disorder [Unknown]
  - Drug ineffective [Unknown]
  - Blood glucose increased [Unknown]
  - Nervousness [Unknown]
